FAERS Safety Report 17593413 (Version 3)
Quarter: 2020Q2

REPORT INFORMATION
  Report Type: Spontaneous
  Country: DE (occurrence: DE)
  Receive Date: 20200327
  Receipt Date: 20200409
  Transmission Date: 20200713
  Serious: Yes (Other)
  Sender: FDA-Public Use
  Company Number: DE-ASTRAZENECA-2020SE42945

PATIENT
  Age: 82 Year
  Weight: 74 kg

DRUGS (4)
  1. ESOMEP [Suspect]
     Active Substance: ESOMEPRAZOLE
     Indication: ABDOMINAL PAIN UPPER
     Dosage: UNKNOWN
     Route: 048
  2. RAMPIRIL [Concomitant]
     Active Substance: RAMIPRIL
     Indication: BLOOD PRESSURE INCREASED
     Dosage: 5MG
     Route: 048
  3. GREPID [Interacting]
     Active Substance: CLOPIDOGREL BESILATE
     Route: 048
  4. LACTULOSE. [Concomitant]
     Active Substance: LACTULOSE
     Indication: CONSTIPATION
     Dosage: THE PATIENT TAKES EVERY 2 DAYS 10-20ML
     Route: 048

REACTIONS (4)
  - Drug interaction [Unknown]
  - Polyneuropathy [Not Recovered/Not Resolved]
  - Tooth extraction [Recovered/Resolved]
  - Purpura [Not Recovered/Not Resolved]
